FAERS Safety Report 6711455-1 (Version None)
Quarter: 2010Q2

REPORT INFORMATION
  Report Type: 
  Country: None (occurrence: None)
  Receive Date: 20100505
  Receipt Date: 20100426
  Transmission Date: 20101027
  Serious: Yes (Hospitalization)
  Sender: FDA-Public Use
  Company Number: IT-PFIZER INC-2010014939

PATIENT
  Age: 59 Year
  Sex: Male

DRUGS (2)
  1. ZAVEDOS [Suspect]
     Indication: ACUTE MYELOID LEUKAEMIA
     Dosage: 32 MG
     Route: 042
     Dates: start: 20100113, end: 20100115
  2. CYTARABINE [Suspect]
     Indication: ACUTE MYELOID LEUKAEMIA
     Dosage: 4 G, X/DAY
     Route: 042
     Dates: start: 20100113, end: 20100115

REACTIONS (1)
  - HEPATOTOXICITY [None]
